FAERS Safety Report 9411510 (Version 1)
Quarter: 2013Q3

REPORT INFORMATION
  Report Type: Spontaneous
  Country: US (occurrence: None)
  Receive Date: 20130718
  Receipt Date: 20130718
  Transmission Date: 20140515
  Serious: Yes (Other)
  Sender: FDA-Public Use
  Company Number: None

PATIENT
  Age: 39 Year
  Sex: Male
  Weight: 170.1 kg

DRUGS (1)
  1. LANTUS [Suspect]
     Dosage: 18 UNITS THEN 20 UNITS 1 BEFORE BEDTIME
     Dates: start: 20120714, end: 20130613

REACTIONS (8)
  - Tremor [None]
  - Asthenia [None]
  - Crying [None]
  - Dizziness [None]
  - Hunger [None]
  - Feeling cold [None]
  - Nervousness [None]
  - Confusional state [None]
